FAERS Safety Report 24137144 (Version 2)
Quarter: 2024Q3

REPORT INFORMATION
  Report Type: Spontaneous
  Country: GB (occurrence: GB)
  Receive Date: 20240725
  Receipt Date: 20240812
  Transmission Date: 20241017
  Serious: Yes (Other)
  Sender: ADVANZ PHARMA
  Company Number: GB-MLMSERVICE-20240705-PI124691-00270-1

PATIENT

DRUGS (27)
  1. PREDNISOLONE [Suspect]
     Active Substance: PREDNISOLONE
     Indication: Myasthenia gravis crisis
     Dosage: 5 MG, TID (STARTING DOSE)
     Route: 048
  2. PREDNISOLONE [Suspect]
     Active Substance: PREDNISOLONE
     Dosage: 50 MG, QD, PROGRESSIVELY INCREASING
     Route: 048
  3. PREDNISOLONE [Suspect]
     Active Substance: PREDNISOLONE
     Dosage: 60 MG, QD, INCREASED DOSE
     Route: 048
  4. PREDNISOLONE [Suspect]
     Active Substance: PREDNISOLONE
     Dosage: 50 MG, QD, SCALED BACK
     Route: 048
  5. PYRIDOSTIGMINE [Suspect]
     Active Substance: PYRIDOSTIGMINE
     Indication: Myasthenia gravis crisis
     Dosage: 30 MG, QID
  6. PYRIDOSTIGMINE [Suspect]
     Active Substance: PYRIDOSTIGMINE
     Dosage: 60 MG, QID, ESCALATED DOSE
  7. PYRIDOSTIGMINE [Suspect]
     Active Substance: PYRIDOSTIGMINE
     Dosage: 60 MG (ADJUSTED TO 60 MG FOR THE FRST TWO DOSES OF THE DAY AND 90 MG FOR THE END OF THE DAY IN TWO D
  8. PYRIDOSTIGMINE [Suspect]
     Active Substance: PYRIDOSTIGMINE
     Dosage: 90 MG (ADJUSTED TO 60 MG FOR THE FRST TWO DOSES OF THE DAY AND 90 MG FOR THE END OF THE DAY  IN TWO
  9. PYRIDOSTIGMINE [Suspect]
     Active Substance: PYRIDOSTIGMINE
     Dosage: 60 MG, QID (DURING SUBSEQUENT NEUROLOGY CLINIC FOLLOW-UPS
  10. PYRIDOSTIGMINE [Suspect]
     Active Substance: PYRIDOSTIGMINE
     Dosage: 30 MG EVERY TWO WEEKS, WEANING DOSE (UNTIL SIDE EFECTS ABATED)
  11. CANDESARTAN [Concomitant]
     Active Substance: CANDESARTAN
     Dosage: 16 MG, QD
  12. OMEPRAZOLE [Concomitant]
     Active Substance: OMEPRAZOLE
     Dosage: 20 MG, QD
  13. ATORVASTATIN [Concomitant]
     Active Substance: ATORVASTATIN
     Indication: Cerebral small vessel ischaemic disease
     Dosage: 10 MG, QD
     Route: 048
  14. ATORVASTATIN [Concomitant]
     Active Substance: ATORVASTATIN
     Dosage: 80 MG, ON DAY 1 OF ADMISSION
  15. HEPARIN [Concomitant]
     Active Substance: HEPARIN SODIUM
     Indication: Myasthenia gravis crisis
     Dosage: 5000 IU, QD (LOW MOLECULAR-WEIGHT HEPARIN)
     Route: 058
  16. ASPIRIN [Concomitant]
     Active Substance: ASPIRIN
     Indication: Cerebral small vessel ischaemic disease
     Dosage: 300 MG
  17. PIPERACILLIN [Concomitant]
     Active Substance: PIPERACILLIN
     Indication: Inflammatory marker increased
     Dosage: UNK
     Route: 042
  18. TAZOBACTAM [Concomitant]
     Active Substance: TAZOBACTAM
     Indication: Inflammatory marker increased
     Dosage: 4.5 G, TID
  19. CEFTRIAXONE [Concomitant]
     Active Substance: CEFTRIAXONE\CEFTRIAXONE SODIUM
     Indication: Inflammatory marker increased
     Dosage: 2 G, QD
     Route: 042
  20. OXYGEN [Concomitant]
     Active Substance: OXYGEN
     Indication: Dyspnoea
     Dosage: 1 L
  21. LANSOPRAZOLE [Concomitant]
     Active Substance: LANSOPRAZOLE
     Dosage: 30 MG, QD
  22. CHOLECALCIFEROL [Concomitant]
     Active Substance: CHOLECALCIFEROL
     Dosage: 400 UNIT (CHOLECALCIFEROL AT 400 UNITS/CALCIUM CARBONATE AT 1.5 GM TWICE DAILY)
  23. CALCIUM CARBONATE [Concomitant]
     Active Substance: CALCIUM CARBONATE
     Dosage: 1.5 G, BID (CHOLECALCIFEROL AT 400 UNITS/CALCIUM CARBONATE AT 1.5 GM TWICE DAILY)
  24. LOPERAMIDE [Concomitant]
     Active Substance: LOPERAMIDE
     Dosage: 2 MG, QD (AS NEEDED)
  25. PROPANTHELINE [Concomitant]
     Active Substance: PROPANTHELINE
     Indication: Defaecation urgency
     Dosage: 15 MG, TID (AS NEEDED)
  26. AZATHIOPRINE [Concomitant]
     Active Substance: AZATHIOPRINE
     Dosage: 50 MG, BID
  27. COTRIMOXAZOLE [Concomitant]
     Active Substance: SULFAMETHOXAZOLE\TRIMETHOPRIM
     Indication: Opportunistic infection prophylaxis
     Dosage: 480 MG, QD

REACTIONS (1)
  - Steroid diabetes [Unknown]
